FAERS Safety Report 18679126 (Version 2)
Quarter: 2021Q1

REPORT INFORMATION
  Report Type: Report from Study
  Country: CN (occurrence: CN)
  Receive Date: 20201229
  Receipt Date: 20210108
  Transmission Date: 20210419
  Serious: Yes (Other)
  Sender: FDA-Public Use
  Company Number: CN-TAKEDA-CN201820792

PATIENT
  Age: 29 Year
  Sex: Male
  Weight: 50 kg

DRUGS (9)
  1. ADVATE [Suspect]
     Active Substance: ANTIHEMOPHILIC FACTOR, HUMAN RECOMBINANT
     Indication: PROPHYLAXIS
     Dosage: UNK UNK, BID
     Route: 050
     Dates: start: 2017
  2. ADVATE [Suspect]
     Active Substance: ANTIHEMOPHILIC FACTOR, HUMAN RECOMBINANT
     Dosage: UNK, 2/WEEK
     Route: 042
     Dates: start: 2017
  3. ADVATE [Suspect]
     Active Substance: ANTIHEMOPHILIC FACTOR, HUMAN RECOMBINANT
     Indication: PROPHYLAXIS
     Dosage: UNK UNK, BID
     Route: 050
     Dates: start: 2017
  4. ADVATE [Suspect]
     Active Substance: ANTIHEMOPHILIC FACTOR, HUMAN RECOMBINANT
     Indication: FACTOR VIII DEFICIENCY
     Dosage: 500 IU, EVERY FEW DAYS
     Route: 042
  5. ADVATE [Suspect]
     Active Substance: ANTIHEMOPHILIC FACTOR, HUMAN RECOMBINANT
     Indication: FACTOR VIII DEFICIENCY
     Dosage: 500 IU, EVERY FEW DAYS
     Route: 042
  6. ADVATE [Suspect]
     Active Substance: ANTIHEMOPHILIC FACTOR, HUMAN RECOMBINANT
     Indication: PROPHYLAXIS
     Dosage: UNK UNK, BID
     Route: 050
     Dates: start: 2017
  7. ADVATE [Suspect]
     Active Substance: ANTIHEMOPHILIC FACTOR, HUMAN RECOMBINANT
     Dosage: UNK, 2/WEEK
     Route: 042
     Dates: start: 2017
  8. ADVATE [Suspect]
     Active Substance: ANTIHEMOPHILIC FACTOR, HUMAN RECOMBINANT
     Dosage: UNK, 2/WEEK
     Route: 042
     Dates: start: 2017
  9. ADVATE [Suspect]
     Active Substance: ANTIHEMOPHILIC FACTOR, HUMAN RECOMBINANT
     Indication: FACTOR VIII DEFICIENCY
     Dosage: 500 IU, EVERY FEW DAYS
     Route: 042

REACTIONS (8)
  - Removal of internal fixation [Unknown]
  - Vascular graft [Unknown]
  - Haemarthrosis [Unknown]
  - Lesion excision [Unknown]
  - Surgery [Recovering/Resolving]
  - Tumour excision [Unknown]
  - Bone graft [Unknown]
  - Vascular anastomosis [Unknown]

NARRATIVE: CASE EVENT DATE: 20180523
